FAERS Safety Report 9148388 (Version 1)
Quarter: 2013Q1

REPORT INFORMATION
  Report Type: Spontaneous
  Country: IN (occurrence: IN)
  Receive Date: 20130308
  Receipt Date: 20130308
  Transmission Date: 20140127
  Serious: Yes (Other)
  Sender: FDA-Public Use
  Company Number: IN-ACCORD-016690

PATIENT
  Age: 37 Year
  Sex: Male

DRUGS (1)
  1. MITOMYCIN [Suspect]
     Indication: OCULAR NEOPLASM
     Dosage: MMC 0.02 % CYCLICAL THEN INCREASED TO 0.04% CYCLICAL
     Route: 061

REACTIONS (3)
  - Limbal stem cell deficiency [Unknown]
  - Eye irritation [Recovered/Resolved]
  - Off label use [Unknown]
